FAERS Safety Report 21870091 (Version 1)
Quarter: 2023Q1

REPORT INFORMATION
  Report Type: Report from Study
  Country: DE (occurrence: DE)
  Receive Date: 20230117
  Receipt Date: 20230117
  Transmission Date: 20230418
  Serious: Yes (Life-Threatening, Other)
  Sender: FDA-Public Use
  Company Number: DE-BRISTOL-MYERS SQUIBB COMPANY-BMS-2021-019496

PATIENT
  Age: 43 Year
  Sex: Female
  Weight: 67.5 kg

DRUGS (8)
  1. NIVOLUMAB [Suspect]
     Active Substance: NIVOLUMAB
     Indication: Oesophageal adenocarcinoma
     Dosage: 240 MILLIGRAM
     Dates: start: 20201215, end: 20210203
  2. IPILIMUMAB [Suspect]
     Active Substance: IPILIMUMAB
     Indication: Oesophageal adenocarcinoma
     Dosage: 67 MILLIGRAM
     Dates: start: 20201215, end: 20210203
  3. OXALIPLATIN [Suspect]
     Active Substance: OXALIPLATIN
     Indication: Oesophageal adenocarcinoma
     Dosage: 155 MILLIGRAM
     Dates: end: 20210203
  4. OXALIPLATIN [Suspect]
     Active Substance: OXALIPLATIN
     Dosage: 160 MILLIGRAM
     Dates: end: 20210331
  5. FLUOROURACIL [Suspect]
     Active Substance: FLUOROURACIL
     Indication: Oesophageal adenocarcinoma
     Dosage: 760 MG BOLUS DOSE AND 4550 MG INFUSION DOSE
     Dates: end: 20210131
  6. FLUOROURACIL [Suspect]
     Active Substance: FLUOROURACIL
     Dosage: 725 MG BOLUS DOSE AND 4525 MG INFUSION DOSE
     Dates: end: 20210203
  7. LEUCOVORIN CALCIUM [Suspect]
     Active Substance: LEUCOVORIN CALCIUM
     Indication: Oesophageal adenocarcinoma
     Dosage: 735 MILLIGRAM
     Dates: end: 20210203
  8. LEUCOVORIN CALCIUM [Suspect]
     Active Substance: LEUCOVORIN CALCIUM
     Dosage: 760 MILLIGRAM
     Dates: end: 20210331

REACTIONS (1)
  - Autoimmune hepatitis [Recovered/Resolved]

NARRATIVE: CASE EVENT DATE: 20210224
